FAERS Safety Report 8815429 (Version 6)
Quarter: 2013Q2

REPORT INFORMATION
  Report Type: Report from Study
  Country: US (occurrence: US)
  Receive Date: 20120928
  Receipt Date: 20130410
  Transmission Date: 20140414
  Serious: Yes (Hospitalization, Other)
  Sender: FDA-Public Use
  Company Number: US-CELGENEUS-163-20785-12092865

PATIENT
  Age: 55 Year
  Sex: Male

DRUGS (11)
  1. THALOMID [Suspect]
     Indication: PLASMA CELL MYELOMA
     Dosage: 100 MILLIGRAM
     Route: 048
     Dates: start: 20101231, end: 20110126
  2. VELCADE [Suspect]
     Indication: PLASMA CELL MYELOMA
     Dosage: 1.3 MILLIGRAM
     Route: 065
     Dates: start: 20101210, end: 20110125
  3. DECADRON [Suspect]
     Indication: PLASMA CELL MYELOMA
     Dosage: 40 MILLIGRAM
     Route: 065
     Dates: start: 20101227, end: 20110126
  4. PROTONIX [Concomitant]
     Indication: GASTROOESOPHAGEAL REFLUX DISEASE
     Dosage: 40 MILLIGRAM
     Route: 065
     Dates: start: 20101204
  5. LISINOPRIL [Concomitant]
     Indication: HYPERTENSION
     Dosage: 40 MILLIGRAM
     Route: 065
     Dates: start: 20101209
  6. METOPROLOL XL [Concomitant]
     Indication: HYPERTENSION
     Dosage: 50 MILLIGRAM
     Route: 065
     Dates: start: 20101229
  7. CALCIUM [Concomitant]
     Indication: HYPOCALCAEMIA
     Dosage: 1000 MILLIGRAM
     Route: 065
     Dates: start: 201012
  8. VITAMIN D [Concomitant]
     Indication: GASTROOESOPHAGEAL REFLUX DISEASE
     Dosage: 1000 MILLIGRAM
     Route: 065
     Dates: start: 201012
  9. AMBIEN [Concomitant]
     Indication: INSOMNIA
     Dosage: 5 MILLIGRAM
     Route: 065
     Dates: start: 201012
  10. ACYCLOVIR [Concomitant]
     Indication: INFECTION PROPHYLAXIS
     Dosage: 800 MILLIGRAM
     Route: 065
     Dates: start: 201012
  11. ASPIRIN [Concomitant]
     Indication: THROMBOSIS PROPHYLAXIS
     Dosage: 81 MILLIGRAM
     Route: 065
     Dates: start: 201012

REACTIONS (3)
  - Endophthalmitis [Not Recovered/Not Resolved]
  - Platelet count decreased [Recovered/Resolved]
  - Ecchymosis [Recovered/Resolved]
